FAERS Safety Report 5780242-3 (Version None)
Quarter: 2008Q2

REPORT INFORMATION
  Report Type: 
  Country: None (occurrence: None)
  Receive Date: 20080620
  Receipt Date: 20080616
  Transmission Date: 20081010
  Serious: Yes (Death, Hospitalization, Other)
  Sender: FDA-Public Use
  Company Number: PHHY2008CA07279

PATIENT
  Age: 66 Year
  Sex: Male

DRUGS (5)
  1. RASILEZ [Suspect]
     Dosage: 300 MG/DAY
     Route: 048
     Dates: start: 20080201
  2. NORVASC [Concomitant]
     Dosage: 5 MG, QOD
     Route: 048
  3. METOPROLOL [Concomitant]
     Dosage: 10 MG BID
     Route: 048
  4. PLAVIX [Concomitant]
     Dosage: 75 MG, QOD
     Route: 048
  5. ASPIRIN 10GR TIMED DISINTEGRATION TAB [Concomitant]
     Dosage: 325 MG

REACTIONS (13)
  - CEREBROVASCULAR ACCIDENT [None]
  - CONVULSION [None]
  - DEATH [None]
  - DYSPNOEA [None]
  - ISCHAEMIA [None]
  - MUSCULOSKELETAL STIFFNESS [None]
  - MYOCARDIAL INFARCTION [None]
  - PHARYNGEAL OEDEMA [None]
  - PRODUCTIVE COUGH [None]
  - PULMONARY OEDEMA [None]
  - PYREXIA [None]
  - RHONCHI [None]
  - VOMITING [None]
